FAERS Safety Report 10270282 (Version 1)
Quarter: 2014Q2

REPORT INFORMATION
  Report Type: Spontaneous
  Country: US (occurrence: None)
  Receive Date: 20140626
  Receipt Date: 20140626
  Transmission Date: 20141212
  Serious: Yes (Disabling)
  Sender: FDA-Public Use
  Company Number: PR-AE14-000719

PATIENT
  Sex: Male

DRUGS (1)
  1. DEBROX [Suspect]
     Indication: CERUMEN REMOVAL
     Dosage: OTIC

REACTIONS (2)
  - Deafness [None]
  - Expired product administered [None]
